FAERS Safety Report 23474105 (Version 1)
Quarter: 2024Q1

REPORT INFORMATION
  Report Type: Spontaneous
  Country: US (occurrence: US)
  Receive Date: 20240204
  Receipt Date: 20240204
  Transmission Date: 20240410
  Serious: No
  Sender: FDA-Public Use
  Company Number: US-JNJFOC-20240158339

PATIENT
  Sex: Male

DRUGS (3)
  1. INVEGA SUSTENNA [Suspect]
     Active Substance: PALIPERIDONE PALMITATE
     Indication: Psychotic disorder
     Dosage: DAY 0
     Route: 030
  2. INVEGA SUSTENNA [Suspect]
     Active Substance: PALIPERIDONE PALMITATE
     Indication: Bipolar disorder
     Dosage: DAY 8
     Route: 030
  3. INVEGA SUSTENNA [Suspect]
     Active Substance: PALIPERIDONE PALMITATE

REACTIONS (17)
  - Constipation [Unknown]
  - Insomnia [Unknown]
  - Drooling [Unknown]
  - Akathisia [Not Recovered/Not Resolved]
  - Parkinsonism [Unknown]
  - Brain fog [Not Recovered/Not Resolved]
  - Sexual dysfunction [Unknown]
  - Anhedonia [Recovering/Resolving]
  - Weight increased [Not Recovered/Not Resolved]
  - Amnesia [Unknown]
  - Blood prolactin increased [Unknown]
  - Flat affect [Unknown]
  - Heart rate increased [Unknown]
  - Apathy [Not Recovered/Not Resolved]
  - Hypoaesthesia [Unknown]
  - Off label use [Unknown]
  - Off label use [Unknown]

NARRATIVE: CASE EVENT DATE: 20230101
